FAERS Safety Report 23890854 (Version 2)
Quarter: 2024Q2

REPORT INFORMATION
  Report Type: Spontaneous
  Country: CN (occurrence: CN)
  Receive Date: 20240523
  Receipt Date: 20240531
  Transmission Date: 20240716
  Serious: Yes (Hospitalization)
  Sender: FDA-Public Use
  Company Number: CN-DAIICHI SANKYO, INC.-DSJ-2024-121443

PATIENT
  Age: 58 Year
  Sex: Female

DRUGS (1)
  1. ENHERTU [Suspect]
     Active Substance: FAM-TRASTUZUMAB DERUXTECAN-NXKI
     Indication: HER2 low breast cancer
     Dosage: 3 DF, ONCE EVERY 3 WK (3 VIALS/TIME)
     Route: 042
     Dates: start: 20240512, end: 20240512

REACTIONS (9)
  - Dysphoria [Unknown]
  - Anisocoria [Unknown]
  - Depressed level of consciousness [Unknown]
  - Trance [Unknown]
  - Mania [Unknown]
  - Somnolence [Not Recovered/Not Resolved]
  - Metastases to central nervous system [Unknown]
  - Nausea [Recovering/Resolving]
  - Vomiting [Recovering/Resolving]

NARRATIVE: CASE EVENT DATE: 20240512
